FAERS Safety Report 8829965 (Version 1)
Quarter: 2012Q4

REPORT INFORMATION
  Report Type: 
  Country: FR (occurrence: FR)
  Receive Date: 20121008
  Receipt Date: 20121008
  Transmission Date: 20130627
  Serious: Yes (Life-Threatening, Other)
  Sender: FDA-Public Use
  Company Number: FR-ASTRAZENECA-2012SE76332

PATIENT
  Age: 61 Year
  Sex: Female

DRUGS (3)
  1. DIPRIVAN [Suspect]
     Route: 042
     Dates: start: 20070425, end: 20070425
  2. SUFENTA [Suspect]
     Route: 065
     Dates: start: 20070425, end: 20070425
  3. TRACRIUM [Suspect]
     Route: 065
     Dates: start: 20070425, end: 20070425

REACTIONS (2)
  - Anaphylactic shock [Recovered/Resolved]
  - Face oedema [Recovered/Resolved]
